FAERS Safety Report 10051767 (Version 1)
Quarter: 2014Q2

REPORT INFORMATION
  Report Type: Spontaneous
  Country: US (occurrence: US)
  Receive Date: 20140402
  Receipt Date: 20140402
  Transmission Date: 20141212
  Serious: Yes (Death)
  Sender: FDA-Public Use
  Company Number: US-ROCHE-1375989

PATIENT
  Age: 62 Year
  Sex: Female

DRUGS (2)
  1. XELODA [Suspect]
     Indication: PRODUCT USED FOR UNKNOWN INDICATION
     Dosage: 14 DAYS EVERY 21 DAYS
     Route: 048
     Dates: start: 20140226
  2. TYKERB [Concomitant]
     Route: 048
     Dates: start: 20140226

REACTIONS (1)
  - Death [Fatal]
